FAERS Safety Report 19199286 (Version 3)
Quarter: 2021Q3

REPORT INFORMATION
  Report Type: Report from Study
  Country: DE (occurrence: DE)
  Receive Date: 20210429
  Receipt Date: 20210709
  Transmission Date: 20211014
  Serious: Yes (Hospitalization)
  Sender: FDA-Public Use
  Company Number: DE-SEAGEN-2021SGN02509

PATIENT

DRUGS (20)
  1. ETOPOSIDE. [Suspect]
     Active Substance: ETOPOSIDE
     Indication: HODGKIN^S DISEASE
     Dosage: 234 MILLIGRAM/SQ. METER
     Route: 065
     Dates: start: 20210410
  2. MESNA. [Concomitant]
     Active Substance: MESNA
     Dosage: 400 MILLIGRAM
     Route: 065
     Dates: start: 20210612
  3. CYCLOPHOSPHAMIDE. [Suspect]
     Active Substance: CYCLOPHOSPHAMIDE
     Dosage: 1840 MILLIGRAM/SQ. METER
     Route: 065
     Dates: start: 20210618
  4. DOXORUBICIN [DOXORUBICIN HYDROCHLORIDE] [Suspect]
     Active Substance: DOXORUBICIN HYDROCHLORIDE
     Indication: HODGKIN^S DISEASE
     Dosage: 75 MILLIGRAM/SQ. METER
     Route: 065
     Dates: start: 20210410
  5. DOXORUBICIN [DOXORUBICIN HYDROCHLORIDE] [Suspect]
     Active Substance: DOXORUBICIN HYDROCHLORIDE
     Dosage: 65 MILLIGRAM/SQ. METER
     Route: 065
     Dates: start: 20210618
  6. ZOFRAN [Concomitant]
     Active Substance: ONDANSETRON HYDROCHLORIDE
     Dosage: UNK
     Dates: start: 20210410
  7. PREDNISOLON [PREDNISOLONE] [Concomitant]
     Active Substance: PREDNISOLONE
     Dosage: 100 MILLIGRAM
     Dates: start: 20210409
  8. BRENTUXIMAB VEDOTIN?MPI [Suspect]
     Active Substance: BRENTUXIMAB VEDOTIN
     Indication: HODGKIN^S DISEASE
     Dosage: UNK
     Route: 065
     Dates: start: 20210409
  9. FENTANYL [FENTANYL CITRATE] [Concomitant]
     Active Substance: FENTANYL CITRATE
     Dosage: 4 MILLIGRAM
     Route: 042
     Dates: start: 20210611
  10. PARACETAMOL [Concomitant]
     Active Substance: ACETAMINOPHEN
     Dosage: 1.000 MILLIGRAM
     Route: 048
     Dates: start: 20210611
  11. BRENTUXIMAB VEDOTIN?MPI [Suspect]
     Active Substance: BRENTUXIMAB VEDOTIN
     Dosage: UNK
     Route: 065
     Dates: start: 20210611
  12. DACARBAZINE. [Suspect]
     Active Substance: DACARBAZINE
     Indication: HODGKIN^S DISEASE
     Dosage: 468 MILLIGRAM/SQ. METER
     Route: 065
     Dates: start: 20210411
  13. DACARBAZINE. [Suspect]
     Active Substance: DACARBAZINE
     Dosage: 465 MILLIGRAM/SQ. METER
     Route: 065
     Dates: start: 20210613
  14. MESNA. [Concomitant]
     Active Substance: MESNA
     Dosage: UNK
     Dates: start: 20210410
  15. CYCLOPHOSPHAMIDE. [Suspect]
     Active Substance: CYCLOPHOSPHAMIDE
     Indication: HODGKIN^S DISEASE
     Dosage: 2057 MILLIGRAM/SQ. METER
     Route: 065
     Dates: start: 20210410
  16. ETOPOSIDE. [Suspect]
     Active Substance: ETOPOSIDE
     Dosage: 186 MILLIGRAM
     Route: 065
     Dates: start: 20210612
  17. DEXAMETHASONE. [Suspect]
     Active Substance: DEXAMETHASONE
     Dosage: UNK
     Route: 065
     Dates: start: 20210612
  18. ZOFRAN [Concomitant]
     Active Substance: ONDANSETRON HYDROCHLORIDE
     Dosage: 8 MILLIGRAM
     Route: 065
     Dates: start: 20210612
  19. NEULASTA [Concomitant]
     Active Substance: PEGFILGRASTIM
     Dosage: 15 MILLIGRAM
     Route: 065
     Dates: start: 20210413
  20. DEXAMETHASONE. [Suspect]
     Active Substance: DEXAMETHASONE
     Indication: HODGKIN^S DISEASE
     Dosage: UNK
     Route: 065
     Dates: start: 20210410

REACTIONS (7)
  - Neutropenia [Recovered/Resolved]
  - Mucosal inflammation [Recovered/Resolved]
  - Pancytopenia [Recovered/Resolved]
  - Leukopenia [Recovered/Resolved]
  - Pneumonia [Recovered/Resolved]
  - Pyrexia [Recovered/Resolved]
  - Thrombocytopenia [Recovered/Resolved]

NARRATIVE: CASE EVENT DATE: 20210419
